FAERS Safety Report 6686066-7 (Version None)
Quarter: 2010Q2

REPORT INFORMATION
  Report Type: 
  Country: None (occurrence: None)
  Receive Date: 20100419
  Receipt Date: 20100408
  Transmission Date: 20101027
  Serious: Yes (Hospitalization, Other)
  Sender: FDA-Public Use
  Company Number: US-JNJFOC-20090907877

PATIENT
  Sex: Female

DRUGS (3)
  1. REMICADE [Suspect]
     Indication: COLITIS ULCERATIVE
     Dosage: 24 DOSES RECEIVED
     Route: 042
  2. REMICADE [Suspect]
     Route: 042
  3. REMICADE [Suspect]
     Dosage: 24 DOSES RECEIVED
     Route: 042

REACTIONS (13)
  - ALOPECIA [None]
  - DRY SKIN [None]
  - GAIT DISTURBANCE [None]
  - HOSPITALISATION [None]
  - HYPOKINESIA [None]
  - RASH PUSTULAR [None]
  - RHEUMATOID ARTHRITIS [None]
  - SKIN DISCOLOURATION [None]
  - SKIN EXFOLIATION [None]
  - SKIN LESION [None]
  - THYROID DISORDER [None]
  - TOOTH LOSS [None]
  - VISUAL ACUITY REDUCED [None]
